FAERS Safety Report 5286813-5 (Version None)
Quarter: 2007Q2

REPORT INFORMATION
  Report Type: 
  Country: None (occurrence: None)
  Receive Date: 20070404
  Receipt Date: 20070321
  Transmission Date: 20071010
  Serious: Yes (Other)
  Sender: FDA-Public Use
  Company Number: US-SHR-US-2007-010035

PATIENT
  Age: 56 Year
  Sex: Female

DRUGS (4)
  1. BETASERON [Suspect]
     Route: 058
     Dates: start: 20051128, end: 20060911
  2. BETASERON [Suspect]
     Dosage: 8 MIU, EVERY 2D
     Route: 058
     Dates: start: 20061011
  3. AVONEX [Suspect]
  4. LEXAPRO [Concomitant]
     Dates: end: 20060724

REACTIONS (6)
  - CHILLS [None]
  - CRYING [None]
  - DISTURBANCE IN ATTENTION [None]
  - HALLUCINATION [None]
  - IMPAIRED DRIVING ABILITY [None]
  - INSOMNIA [None]
